FAERS Safety Report 10661591 (Version 1)
Quarter: 2014Q4

REPORT INFORMATION
  Report Type: Spontaneous
  Country: DE (occurrence: None)
  Receive Date: 20141216
  Receipt Date: 20141216
  Transmission Date: 20150529
  Serious: Yes (Hospitalization, Congenital Anomaly, Other)
  Sender: FDA-Public Use
  Company Number: DE-2014VAL000656

PATIENT
  Age: 1 Day
  Sex: Male

DRUGS (9)
  1. METOPROLOL TARTRATE. [Suspect]
     Active Substance: METOPROLOL TARTRATE
     Indication: MATERNAL EXPOSURE TIMING UNSPECIFIED
     Route: 064
     Dates: start: 201212, end: 2013
  2. VALSARTAN. [Suspect]
     Active Substance: VALSARTAN
     Indication: MATERNAL EXPOSURE TIMING UNSPECIFIED
     Route: 064
     Dates: start: 201212, end: 2013
  3. HYDRALAZINE [Concomitant]
     Active Substance: HYDRALAZINE HYDROCHLORIDE
  4. THYROXIN [Concomitant]
     Active Substance: LEVOTHYROXINE
  5. FOLIO [Concomitant]
     Active Substance: FOLIC ACID
  6. NOVORAPID [Concomitant]
     Active Substance: INSULIN ASPART
  7. DIAZEPAM. [Concomitant]
     Active Substance: DIAZEPAM
  8. HYDROCHLOROTHIAZIDE. [Suspect]
     Active Substance: HYDROCHLOROTHIAZIDE
     Indication: MATERNAL EXPOSURE TIMING UNSPECIFIED
     Route: 064
     Dates: start: 201212, end: 2013
  9. METHYLDOPA. [Concomitant]
     Active Substance: METHYLDOPA

REACTIONS (9)
  - Caesarean section [None]
  - Atrial septal defect [None]
  - Hypospadias [None]
  - Pulmonary valve stenosis congenital [None]
  - Maternal drugs affecting foetus [None]
  - Ventricular septal defect [None]
  - Hypoacusis [None]
  - Premature baby [None]
  - Patent ductus arteriosus [None]

NARRATIVE: CASE EVENT DATE: 2012
